FAERS Safety Report 4303448-9 (Version None)
Quarter: 2004Q1

REPORT INFORMATION
  Report Type: 
  Country: None (occurrence: None)
  Receive Date: 20040223
  Receipt Date: 20040203
  Transmission Date: 20041129
  Serious: Yes (Hospitalization)
  Sender: FDA-Public Use
  Company Number: A02200400383

PATIENT
  Age: 55 Year
  Sex: Male

DRUGS (12)
  1. STILNOX (ZOLIPIDEM) [Suspect]
     Indication: BONE OPERATION
     Dosage: SUBCUTANEOUS
     Route: 058
  2. STILNOX (ZOLIPIDEM) [Suspect]
     Indication: THROMBOSIS PROPHYLAXIS
     Dosage: SUBCUTANEOUS
     Route: 058
  3. MYOLASTAN- (TETRAZEPAM)-TABLET- 50 MG [Suspect]
     Dosage: ORAL
     Route: 048
  4. FRAXIPARINE-(NADROPARIN CA)-SOLUTION [Suspect]
     Dosage: ORAL
     Route: 048
  5. BI-PROFEND-(KETOPROFEN)-TABLET-150 MG [Suspect]
     Dosage: ORAL
     Route: 048
  6. AMITRIPTYLINE HYDROCHLORIDE [Suspect]
     Dosage: ORAL
     Route: 048
  7. OMEPRAZOLE [Suspect]
     Dosage: ORAL
     Route: 048
  8. TENORMINE-(ATENOLOL)-TABLET-100 MG [Suspect]
     Dosage: ORAL
     Route: 048
  9. TRAMADOL HYDROCHLORIDE-CAPSULE-50 MG [Suspect]
     Dosage: ORAL
     Route: 048
  10. STABLON-(TIANEPTINE)-TABLET-12.5 MG [Suspect]
     Dosage: ORAL
     Route: 048
  11. PRAVASTATIN SODIUM [Suspect]
     Dosage: ORAL
     Route: 048
  12. GINKOR-(GINKO BILOBA EXTRACT) [Suspect]

REACTIONS (1)
  - EOSINOPHILIA [None]
